FAERS Safety Report 7597481-1 (Version None)
Quarter: 2011Q3

REPORT INFORMATION
  Report Type: 
  Country: None (occurrence: None)
  Receive Date: 20110708
  Receipt Date: 20110628
  Transmission Date: 20111222
  Serious: Yes (Other)
  Sender: FDA-Public Use
  Company Number: PHHY2011US36370

PATIENT
  Sex: Female

DRUGS (1)
  1. GENTEAL [Suspect]
     Indication: DRY EYE

REACTIONS (3)
  - NEURALGIA [None]
  - CEREBROVASCULAR ACCIDENT [None]
  - PRODUCT TASTE ABNORMAL [None]
